FAERS Safety Report 8031225-4 (Version None)
Quarter: 2012Q1

REPORT INFORMATION
  Report Type: 
  Country: None (occurrence: None)
  Receive Date: 20120105
  Receipt Date: 20111207
  Transmission Date: 20120608
  Serious: Yes (Life-Threatening)
  Sender: FDA-Public Use
  Company Number: DK-SEPTODONT-201100232

PATIENT
  Age: 36 Year
  Sex: Female
  Weight: 90 kg

DRUGS (1)
  1. ARTICAINE HYDROCHLORIDE AND EPINEPHRINE BITARTRATE [Suspect]
     Dosage: 4X1,7 ML STRENGTH: 40 MG/ML + 5 MICROGRAM/ML DENTAL
     Route: 004
     Dates: start: 20111201, end: 20111201

REACTIONS (6)
  - DISCOMFORT [None]
  - PALATAL OEDEMA [None]
  - DRY THROAT [None]
  - SWELLING FACE [None]
  - RESTLESSNESS [None]
  - HYPERSENSITIVITY [None]
